FAERS Safety Report 8890146 (Version 1)
Quarter: 2012Q4

REPORT INFORMATION
  Report Type: Report from Study
  Country: CA (occurrence: CA)
  Receive Date: 20121107
  Receipt Date: 20121107
  Transmission Date: 20130627
  Serious: Yes (Other)
  Sender: FDA-Public Use
  Company Number: CA-JNJFOC-20121017239

PATIENT
  Age: 20 Year
  Sex: Male
  Weight: 65 kg

DRUGS (5)
  1. REMICADE [Suspect]
     Indication: COLITIS ULCERATIVE
     Route: 042
     Dates: start: 20100625
  2. VITAMIN D [Concomitant]
     Route: 065
  3. OMEGA 3 [Concomitant]
     Route: 065
  4. A MULTIVITAMIN [Concomitant]
     Route: 065
  5. RETIN A MICRO [Concomitant]
     Route: 065

REACTIONS (1)
  - Heart rate increased [Unknown]
